FAERS Safety Report 16414863 (Version 4)
Quarter: 2019Q3

REPORT INFORMATION
  Report Type: Spontaneous
  Country: JP (occurrence: JP)
  Receive Date: 20190611
  Receipt Date: 20190924
  Transmission Date: 20191004
  Serious: Yes (Hospitalization, Other)
  Sender: FDA-Public Use
  Company Number: JP-CELGENEUS-JPN-20190602523

PATIENT
  Age: 70 Year
  Sex: Male

DRUGS (2)
  1. OTEZLA [Suspect]
     Active Substance: APREMILAST
     Dosage: UNKNOWN
     Route: 048
     Dates: start: 2019
  2. OTEZLA [Suspect]
     Active Substance: APREMILAST
     Indication: PSORIASIS
     Dosage: 30 MILLIGRAM
     Route: 048
     Dates: start: 201808, end: 20190528

REACTIONS (12)
  - Acute kidney injury [Recovering/Resolving]
  - Pyrexia [Unknown]
  - Urinary tract infection [Unknown]
  - Nausea [Unknown]
  - Abdominal pain [Unknown]
  - Leukocytosis [Unknown]
  - Dysphonia [Unknown]
  - Diarrhoea [Recovering/Resolving]
  - Vomiting [Recovering/Resolving]
  - Enterocolitis [Unknown]
  - C-reactive protein increased [Unknown]
  - Cholelithiasis [Unknown]

NARRATIVE: CASE EVENT DATE: 201905
